FAERS Safety Report 8302729-1 (Version None)
Quarter: 2012Q2

REPORT INFORMATION
  Report Type: 
  Country: None (occurrence: None)
  Receive Date: 20120420
  Receipt Date: 20120411
  Transmission Date: 20120825
  Serious: Yes (Other)
  Sender: FDA-Public Use
  Company Number: US-ELI_LILLY_AND_COMPANY-US200905001030

PATIENT
  Sex: Female
  Weight: 81.633 kg

DRUGS (9)
  1. ACTOS [Concomitant]
     Indication: INSULIN-REQUIRING TYPE 2 DIABETES MELLITUS
     Dosage: UNK, DAILY (1/D)
  2. LANTUS [Concomitant]
     Dosage: 30 U, EACH EVENING
     Route: 058
  3. LANTUS [Concomitant]
     Dosage: 20 U, EACH EVENING
     Route: 058
  4. BYETTA [Suspect]
     Indication: INSULIN-REQUIRING TYPE 2 DIABETES MELLITUS
     Dosage: 5 UG, 2/D
     Route: 058
     Dates: start: 20070101, end: 20070101
  5. JANUVIA [Concomitant]
     Dates: start: 20090401, end: 20090101
  6. LANTUS [Concomitant]
     Indication: INSULIN-REQUIRING TYPE 2 DIABETES MELLITUS
     Dosage: 15 U, EACH EVENING
  7. BYETTA [Suspect]
     Dosage: 10 UG, 2/D
     Route: 058
     Dates: start: 20070101, end: 20090401
  8. BYETTA [Suspect]
     Dosage: 10 UG, 2/D
     Route: 058
     Dates: start: 20090505
  9. BYETTA [Suspect]
     Dosage: 5 UG, BID
     Route: 058
     Dates: end: 20120401

REACTIONS (11)
  - OEDEMA PERIPHERAL [None]
  - PAIN IN EXTREMITY [None]
  - CONSTIPATION [None]
  - APPETITE DISORDER [None]
  - DECREASED APPETITE [None]
  - LOSS OF CONSCIOUSNESS [None]
  - WEIGHT INCREASED [None]
  - NAUSEA [None]
  - MUSCLE SPASMS [None]
  - PERIPHERAL COLDNESS [None]
  - MALAISE [None]
